FAERS Safety Report 4917723-8 (Version None)
Quarter: 2006Q1

REPORT INFORMATION
  Report Type: 
  Country: None (occurrence: None)
  Receive Date: 20060215
  Receipt Date: 20060202
  Transmission Date: 20060701
  Serious: Yes (Other)
  Sender: FDA-Public Use
  Company Number: 2006017644

PATIENT
  Sex: Female

DRUGS (1)
  1. DEPO-MEDROL [Suspect]
     Indication: BACK PAIN
     Dosage: EPIDURAL
     Route: 008

REACTIONS (2)
  - CONDITION AGGRAVATED [None]
  - OSTEONECROSIS [None]
